FAERS Safety Report 16862172 (Version 2)
Quarter: 2020Q3

REPORT INFORMATION
  Report Type: Spontaneous
  Country: US (occurrence: US)
  Receive Date: 20190927
  Receipt Date: 20200826
  Transmission Date: 20201102
  Serious: Yes (Death, Hospitalization, Other)
  Sender: FDA-Public Use
  Company Number: US-GILEAD-2019-0429742

PATIENT
  Age: 51 Year
  Sex: Female

DRUGS (24)
  1. CALCIUM 500+D3 [Concomitant]
     Active Substance: CALCIUM CARBONATE\CHOLECALCIFEROL
  2. ZIAGEN [Concomitant]
     Active Substance: ABACAVIR SULFATE
  3. HYDROXYZINE [Concomitant]
     Active Substance: HYDROXYZINE HYDROCHLORIDE
  4. LEVOFLOXACIN. [Concomitant]
     Active Substance: LEVOFLOXACIN
  5. DEXTROSE. [Concomitant]
     Active Substance: DEXTROSE
  6. EUCERIN [UREA] [Concomitant]
  7. HYDRALAZINE [Concomitant]
     Active Substance: HYDRALAZINE HYDROCHLORIDE
  8. FLAGYL [Concomitant]
     Active Substance: METRONIDAZOLE\METRONIDAZOLE HYDROCHLORIDE
  9. IMODIUM [Concomitant]
     Active Substance: LOPERAMIDE HYDROCHLORIDE
  10. LIPITOR [Concomitant]
     Active Substance: ATORVASTATIN CALCIUM
  11. CLINDAMYCIN. [Concomitant]
     Active Substance: CLINDAMYCIN
  12. RENVELA [Concomitant]
     Active Substance: SEVELAMER CARBONATE
  13. SUSTIVA [Concomitant]
     Active Substance: EFAVIRENZ
  14. DIFLUCAN [Concomitant]
     Active Substance: FLUCONAZOLE
  15. FLUCONAZOLE. [Concomitant]
     Active Substance: FLUCONAZOLE
  16. ATRIPLA [Suspect]
     Active Substance: EFAVIRENZ\EMTRICITABINE\TENOFOVIR DISOPROXIL FUMARATE
     Indication: HIV INFECTION
     Dosage: UNK
     Route: 048
     Dates: start: 201304, end: 201603
  17. FUROSEMID [FUROSEMIDE] [Concomitant]
     Active Substance: FUROSEMIDE
  18. EMTRIVA [Concomitant]
     Active Substance: EMTRICITABINE
  19. FOLIC ACID. [Concomitant]
     Active Substance: FOLIC ACID
  20. HYDROCODONE [Concomitant]
     Active Substance: HYDROCODONE
  21. HYDROMORPHONE [Concomitant]
     Active Substance: HYDROMORPHONE
  22. COREG [Concomitant]
     Active Substance: CARVEDILOL
  23. FENTANYL. [Concomitant]
     Active Substance: FENTANYL
  24. LOPERAMIDE [Concomitant]
     Active Substance: LOPERAMIDE

REACTIONS (13)
  - Renal failure [Fatal]
  - Anhedonia [Not Recovered/Not Resolved]
  - Pain [Not Recovered/Not Resolved]
  - Emotional distress [Not Recovered/Not Resolved]
  - Abnormal dreams [Unknown]
  - Somnambulism [Unknown]
  - End stage renal disease [Fatal]
  - Multiple injuries [Not Recovered/Not Resolved]
  - Acute kidney injury [Not Recovered/Not Resolved]
  - Economic problem [Not Recovered/Not Resolved]
  - Depression [Not Recovered/Not Resolved]
  - Bone density decreased [Unknown]
  - Anxiety [Not Recovered/Not Resolved]

NARRATIVE: CASE EVENT DATE: 20160323
